FAERS Safety Report 7998275-5 (Version None)
Quarter: 2011Q4

REPORT INFORMATION
  Report Type: 
  Country: None (occurrence: None)
  Receive Date: 20111221
  Receipt Date: 20110608
  Transmission Date: 20120403
  Serious: No
  Sender: FDA-Public Use
  Company Number: US-GLAXOSMITHKLINE-A0930783A

PATIENT
  Age: 47 Year
  Sex: Male

DRUGS (5)
  1. LOVAZA [Suspect]
     Indication: BLOOD TRIGLYCERIDES INCREASED
     Dosage: 2G TWICE PER DAY
     Route: 048
  2. SOMA [Concomitant]
  3. NIASPAN [Concomitant]
  4. HYDROCODONE [Concomitant]
  5. TIGAN [Concomitant]

REACTIONS (5)
  - INFLUENZA LIKE ILLNESS [None]
  - PRODUCT ODOUR ABNORMAL [None]
  - PRODUCT QUALITY ISSUE [None]
  - ODYNOPHAGIA [None]
  - CHILLS [None]
